FAERS Safety Report 9235620 (Version 3)
Quarter: 2014Q2

REPORT INFORMATION
  Report Type: Report from Study
  Country: CA (occurrence: CA)
  Receive Date: 20130417
  Receipt Date: 20140523
  Transmission Date: 20141212
  Serious: Yes (Other)
  Sender: FDA-Public Use
  Company Number: CA-JNJFOC-20130405438

PATIENT
  Age: 27 Year
  Sex: Female
  Weight: 65 kg

DRUGS (9)
  1. REMICADE [Suspect]
     Indication: CROHN^S DISEASE
     Dosage: APPROXIMATE TOTAL NUMBER OF INFUSIONS: 32
     Route: 042
     Dates: start: 20081203
  2. FOLIC ACID [Concomitant]
     Route: 065
  3. SALOFALK [Concomitant]
     Indication: CROHN^S DISEASE
     Route: 065
  4. VITAMIN B15 [Concomitant]
     Route: 065
  5. SERTRALINE [Concomitant]
     Indication: CROHN^S DISEASE
     Route: 065
  6. BUPROPION SR [Concomitant]
     Route: 065
  7. OMEGA 3 [Concomitant]
     Route: 065
  8. CALCIUM W/MAGNESIUM/VITAMIN D [Concomitant]
     Route: 065
  9. SOLUCORTEF [Concomitant]
     Indication: PREMEDICATION
     Route: 065

REACTIONS (3)
  - Uterine infection [Recovered/Resolved]
  - Fungal infection [Recovered/Resolved]
  - Oedema peripheral [Recovered/Resolved]
